FAERS Safety Report 11063768 (Version 1)
Quarter: 2015Q2

REPORT INFORMATION
  Report Type: Spontaneous
  Country: US (occurrence: US)
  Receive Date: 20150424
  Receipt Date: 20150424
  Transmission Date: 20150821
  Serious: No
  Sender: FDA-Public Use
  Company Number: US-009507513-1504USA020231

PATIENT
  Sex: Female

DRUGS (1)
  1. NASONEX [Suspect]
     Active Substance: MOMETASONE FUROATE
     Indication: HYPERSENSITIVITY
     Dosage: 1 SPRAY IN EACH NOSTRIL TWICE DAILY
     Route: 045
     Dates: start: 2013

REACTIONS (3)
  - Drug dose omission [Unknown]
  - Hypersensitivity [Not Recovered/Not Resolved]
  - Product quality issue [Unknown]
